FAERS Safety Report 7860640-4 (Version None)
Quarter: 2011Q4

REPORT INFORMATION
  Report Type: 
  Country: None (occurrence: None)
  Receive Date: 20111027
  Receipt Date: 20111017
  Transmission Date: 20120403
  Serious: Yes (Hospitalization, Other)
  Sender: FDA-Public Use
  Company Number: US-BAYER-2011-033452

PATIENT
  Age: 27 Year
  Sex: Female
  Weight: 72.562 kg

DRUGS (3)
  1. YAZ [Suspect]
     Dosage: UNK
     Route: 048
     Dates: start: 20071201, end: 20100301
  2. DILAUDID [Concomitant]
     Indication: PAIN
  3. CONCEPTROL [Concomitant]
     Indication: CONTRACEPTION

REACTIONS (8)
  - GALLBLADDER DISORDER [None]
  - PAIN [None]
  - INJURY [None]
  - MYOCARDIAL INFARCTION [None]
  - DEEP VEIN THROMBOSIS [None]
  - CEREBROVASCULAR ACCIDENT [None]
  - PULMONARY EMBOLISM [None]
  - CHOLECYSTITIS ACUTE [None]
